FAERS Safety Report 5257903-8 (Version None)
Quarter: 2007Q1

REPORT INFORMATION
  Report Type: 
  Country: None (occurrence: None)
  Receive Date: 20070307
  Receipt Date: 20061011
  Transmission Date: 20070707
  Serious: No
  Sender: FDA-Public Use
  Company Number: US-GLAXOSMITHKLINE-A0623261A

PATIENT
  Age: 77 Year
  Sex: Male

DRUGS (12)
  1. REQUIP [Suspect]
     Indication: RESTLESS LEGS SYNDROME
     Dosage: 1MG VARIABLE DOSE
     Route: 048
  2. FLOMAX [Concomitant]
  3. HYDROCHLOROTHIAZIDE [Concomitant]
  4. OMEPRAZOLE [Concomitant]
  5. UNKNOWN MEDICATION [Concomitant]
  6. COREG [Concomitant]
  7. DIGITEK [Concomitant]
  8. PREDNISONE [Concomitant]
  9. QUININE [Concomitant]
  10. GLYCOLAX [Concomitant]
  11. ASPIRIN [Concomitant]
  12. DIAZEPAM [Concomitant]

REACTIONS (2)
  - DIZZINESS [None]
  - DRUG INEFFECTIVE [None]
